FAERS Safety Report 4932843-X (Version None)
Quarter: 2006Q1

REPORT INFORMATION
  Report Type: 
  Country: None (occurrence: None)
  Receive Date: 20060306
  Receipt Date: 20060221
  Transmission Date: 20060701
  Serious: Yes (Other)
  Sender: FDA-Public Use
  Company Number: NL-AMGEN-UK169808

PATIENT
  Sex: Female

DRUGS (16)
  1. ARANESP [Suspect]
     Indication: DIALYSIS
     Route: 058
     Dates: start: 20050101
  2. EPREX [Suspect]
     Dates: start: 20000101
  3. PANTOZOL [Concomitant]
     Route: 048
     Dates: start: 20040127
  4. LIPITOR [Concomitant]
     Route: 048
     Dates: start: 20030926
  5. ASCORBIC ACID [Concomitant]
     Route: 048
     Dates: start: 20030617
  6. FOLIC ACID [Concomitant]
     Route: 048
     Dates: start: 20030617
  7. ASCAL [Concomitant]
     Route: 048
     Dates: start: 20050830
  8. FRAXIPARINE [Concomitant]
     Route: 042
     Dates: start: 20050705
  9. VENOFER [Concomitant]
     Route: 042
     Dates: start: 20050910
  10. MUPIROCIN [Concomitant]
     Route: 065
     Dates: start: 20050608
  11. PREDNISOLONE [Concomitant]
     Route: 048
     Dates: start: 20051213
  12. CALCIUM ACETATE [Concomitant]
     Route: 048
     Dates: start: 20050712
  13. PERSANTIN [Concomitant]
     Route: 048
     Dates: start: 20031101
  14. VITAMIN B COMPLEX CAP [Concomitant]
     Route: 048
     Dates: start: 20030617
  15. FUROSEMIDE [Concomitant]
     Route: 048
     Dates: start: 20040702
  16. DIPYRIDAMOLE [Concomitant]
     Route: 065

REACTIONS (4)
  - ANAEMIA [None]
  - CONDITION AGGRAVATED [None]
  - DRUG SPECIFIC ANTIBODY PRESENT [None]
  - THERAPEUTIC RESPONSE DECREASED [None]
